FAERS Safety Report 8403581-6 (Version None)
Quarter: 2012Q2

REPORT INFORMATION
  Report Type: 
  Country: None (occurrence: None)
  Receive Date: 20120601
  Receipt Date: 20120524
  Transmission Date: 20120825
  Serious: Yes (Other)
  Sender: FDA-Public Use
  Company Number: US-JNJFOC-20120520810

PATIENT
  Sex: Female
  Weight: 87 kg

DRUGS (20)
  1. PROPOFOL [Concomitant]
     Indication: ANAESTHESIA
     Dates: start: 20120102
  2. GLYCOPYRROLATE [Concomitant]
     Indication: SECRETION DISCHARGE
     Dates: start: 20120102
  3. OXYCODONE HCL AND ACETAMINOPHEN [Concomitant]
     Indication: PAIN
     Dates: start: 20120104
  4. MIDAZOLAM [Concomitant]
     Indication: ANAESTHESIA
     Dates: start: 20120102
  5. NEOSTIGMINE [Concomitant]
     Indication: ANAESTHESIA
     Dates: start: 20120102
  6. LACTATED RINGER'S [Concomitant]
     Indication: DEHYDRATION
     Dates: start: 20120102, end: 20120103
  7. LISINOPRIL [Concomitant]
     Indication: HYPERTENSION
  8. BACITRACIN [Concomitant]
     Indication: WOUND TREATMENT
     Dates: start: 20120102
  9. XYLOCAINE [Concomitant]
     Indication: ANAESTHESIA
     Dates: start: 20120102
  10. QUELICIN [Concomitant]
     Indication: ANAESTHESIA
     Dates: start: 20120102
  11. VITAMIN D [Concomitant]
     Indication: MEDICAL DIET
  12. NEURONTIN [Concomitant]
     Indication: PAIN
  13. VECURONIUM BROMIDE [Concomitant]
     Indication: ANAESTHESIA
     Dates: start: 20120102
  14. CEFAZOLIN [Concomitant]
     Indication: PREMEDICATION
     Dates: start: 20120102, end: 20120103
  15. FENTANYL-100 [Concomitant]
     Indication: ANAESTHESIA
     Dates: start: 20120102
  16. ONDANSETRON [Concomitant]
     Indication: PROPHYLAXIS OF NAUSEA AND VOMITING
  17. XARELTO [Suspect]
     Indication: THROMBOSIS PROPHYLAXIS
     Route: 048
     Dates: start: 20120102, end: 20120104
  18. HYDROCODONE BITARTRATE AND ACETAMINOPHEN [Concomitant]
     Indication: PAIN
     Dates: start: 20120102, end: 20120103
  19. BUPIVACAINE HYDROCHLORIDE W/EPINEPHRINE [Concomitant]
     Indication: ANAESTHESIA
     Dates: start: 20120102
  20. DEXAMETHASONE [Concomitant]
     Indication: PROPHYLAXIS OF NAUSEA AND VOMITING
     Dates: start: 20120102

REACTIONS (1)
  - PULMONARY EMBOLISM [None]
